FAERS Safety Report 7684322-7 (Version None)
Quarter: 2011Q3

REPORT INFORMATION
  Report Type: 
  Country: None (occurrence: None)
  Receive Date: 20110815
  Receipt Date: 20110802
  Transmission Date: 20111222
  Serious: No
  Sender: FDA-Public Use
  Company Number: US-B.I. PHARMACEUTICALS,INC./RIDGEFIELD-2011-BP-13344BP

PATIENT
  Sex: Male

DRUGS (8)
  1. VITAMIN TAB [Concomitant]
     Indication: VITAMIN SUPPLEMENTATION
     Route: 048
     Dates: start: 19910101
  2. VITAMIN TAB [Concomitant]
     Indication: ROUTINE HEALTH MAINTENANCE
  3. LISINOPRIL [Concomitant]
     Indication: HYPERTENSION
     Dosage: 5 MG
     Route: 048
     Dates: start: 20060101
  4. CARVEDILOL [Concomitant]
     Indication: HYPERTENSION
     Dosage: 25 MG
     Route: 048
     Dates: start: 20060101
  5. CINNAMON [Concomitant]
     Indication: DIABETES MELLITUS
  6. ZOCOR [Concomitant]
     Indication: BLOOD CHOLESTEROL INCREASED
     Dosage: 20 MG
     Route: 048
     Dates: start: 20060101
  7. CINNAMON [Concomitant]
     Indication: VITAMIN SUPPLEMENTATION
     Dosage: 1000 MG
     Route: 048
     Dates: start: 20090101
  8. PRADAXA [Suspect]
     Indication: ATRIAL FIBRILLATION
     Dosage: 300 MG
     Route: 048
     Dates: start: 20101201

REACTIONS (5)
  - HYPERCHLORHYDRIA [None]
  - FATIGUE [None]
  - COLONIC POLYP [None]
  - ABDOMINAL DISCOMFORT [None]
  - DYSPEPSIA [None]
